FAERS Safety Report 16905131 (Version 1)
Quarter: 2019Q4

REPORT INFORMATION
  Report Type: Spontaneous
  Country: CN (occurrence: CN)
  Receive Date: 20191010
  Receipt Date: 20191010
  Transmission Date: 20200122
  Serious: No
  Sender: FDA-Public Use
  Company Number: CN-B.BRAUN MEDICAL INC.-2075521

PATIENT
  Age: 8 Day
  Sex: Female
  Weight: 2.58 kg

DRUGS (3)
  1. NUTRILIPID I.V. FAT EMULSION [Suspect]
     Active Substance: SOYBEAN OIL
     Indication: PREMATURE BABY
     Route: 041
     Dates: start: 20190908, end: 20190910
  2. GLUCOSE INJECTION [Concomitant]
     Active Substance: DEXTROSE
     Route: 041
     Dates: start: 20190908, end: 20190910
  3. WATER SOLUBLE VITAMINS FOR INJECTION [Concomitant]
     Dates: start: 20190908, end: 20190910

REACTIONS (1)
  - Diarrhoea [None]

NARRATIVE: CASE EVENT DATE: 20190909
